FAERS Safety Report 5951119-5 (Version None)
Quarter: 2008Q4

REPORT INFORMATION
  Report Type: 
  Country: None (occurrence: None)
  Receive Date: 20081112
  Receipt Date: 20081112
  Transmission Date: 20090506
  Serious: Yes (Hospitalization)
  Sender: FDA-Public Use
  Company Number: None

PATIENT
  Age: 33 Year
  Sex: Female
  Weight: 113.3993 kg

DRUGS (1)
  1. REGLAN [Suspect]
     Indication: THROAT TIGHTNESS
     Dosage: 10 ML EVERY 12 HOURS PO
     Route: 048
     Dates: start: 20070523, end: 20070525

REACTIONS (10)
  - AMNESIA [None]
  - ANGER [None]
  - ANXIETY [None]
  - ASTHENIA [None]
  - CHEST PAIN [None]
  - DEPRESSION [None]
  - DYSKINESIA [None]
  - HYPOAESTHESIA [None]
  - MUSCULOSKELETAL STIFFNESS [None]
  - PANIC ATTACK [None]
